FAERS Safety Report 9762743 (Version 1)
Quarter: 2013Q4

REPORT INFORMATION
  Report Type: Spontaneous
  Country: NL (occurrence: NL)
  Receive Date: 20131216
  Receipt Date: 20131216
  Transmission Date: 20140711
  Serious: Yes (Hospitalization)
  Sender: FDA-Public Use
  Company Number: NL-ELI_LILLY_AND_COMPANY-NL201312002795

PATIENT
  Age: 36 Year
  Sex: Male
  Weight: 117 kg

DRUGS (16)
  1. HUMALOG LISPRO [Suspect]
     Indication: TYPE 1 DIABETES MELLITUS
     Dosage: UNK UNK, TID
     Route: 065
     Dates: start: 2006, end: 20131005
  2. LEVEMIR [Interacting]
     Indication: TYPE 1 DIABETES MELLITUS
     Dosage: UNK, BID
     Route: 065
     Dates: start: 2006, end: 20131005
  3. CIPROFLOXACINE [Interacting]
     Indication: EAR INFECTION
     Dosage: UNK
     Route: 065
     Dates: start: 20130923
  4. LEVOMENTHOL [Concomitant]
     Dosage: UNK, PRN
  5. METFORMINE [Concomitant]
     Dosage: 500 MG, QD
     Route: 065
  6. PANTOPRAZOL [Concomitant]
     Dosage: 40 MG, QD
     Route: 065
     Dates: end: 20131005
  7. ATORVASTATIN [Concomitant]
     Dosage: 40 MG, BID
     Route: 065
     Dates: end: 20131005
  8. PERINDOPRIL ERBUMINE [Concomitant]
     Dosage: 2 MG, QD
     Route: 065
  9. CLOPIDOGREL HYDROCHLORIDE [Concomitant]
     Dosage: 75 MG, QD
     Route: 065
  10. CLEMASTINE [Concomitant]
     Dosage: 1 MG, PRN
     Route: 065
     Dates: end: 20131005
  11. MOVICOLON [Concomitant]
     Dosage: 1 DF, QD
     Route: 065
  12. ACETYLSALICYLZUUR [Concomitant]
     Dosage: 80 MG, QD
     Route: 065
  13. TRAFLOXAL [Concomitant]
     Dosage: UNK, TID
  14. CIPROFLOXACINE [Concomitant]
     Dosage: 750 MG, BID
     Dates: end: 20131007
  15. TRAMADOL [Concomitant]
     Dosage: 50 MG, TID
     Dates: end: 20131005
  16. PARACETAMOL [Concomitant]
     Dosage: 1000 MG, PRN
     Dates: end: 20131005

REACTIONS (6)
  - Hepatitis [Recovering/Resolving]
  - Hyperglycaemia [Recovering/Resolving]
  - Drug interaction [Recovering/Resolving]
  - Ear infection [Unknown]
  - Insulin resistance [Recovering/Resolving]
  - Pruritus [Recovering/Resolving]
